FAERS Safety Report 22653643 (Version 1)
Quarter: 2023Q2

REPORT INFORMATION
  Report Type: Spontaneous
  Country: US (occurrence: None)
  Receive Date: 20230628
  Receipt Date: 20230628
  Transmission Date: 20230721
  Serious: Yes (Hospitalization)
  Sender: FDA-Public Use
  Company Number: None

PATIENT
  Age: 56 Year
  Sex: Male

DRUGS (1)
  1. COSENTYX [Suspect]
     Active Substance: SECUKINUMAB
     Dosage: 300MG OTHER SUBCUTANEOUS
     Route: 058

REACTIONS (2)
  - Cellulitis [None]
  - Therapy interrupted [None]

NARRATIVE: CASE EVENT DATE: 20230526
